FAERS Safety Report 17695428 (Version 1)
Quarter: 2020Q2

REPORT INFORMATION
  Report Type: Spontaneous
  Country: SE (occurrence: SE)
  Receive Date: 20200422
  Receipt Date: 20200422
  Transmission Date: 20200714
  Serious: Yes (Other)
  Sender: FDA-Public Use
  Company Number: SE-BAXTER-2020BAX008164

PATIENT
  Age: 32 Year
  Sex: Female

DRUGS (6)
  1. SUFENTANIL [Suspect]
     Active Substance: SUFENTANIL
     Indication: EPIDURAL ANAESTHESIA
     Dosage: 0.5 MCG/ML IN VOLUMES OF 10 ML ADMINISTERED IN MINIMUM TIME LAPS OF 60 MIN?BOLUS
     Route: 040
  2. BUPIVACAINE ALTERNOVA, 5 MG/ML INJEKTIONSV?TSKA, LOSNING [Suspect]
     Active Substance: BUPIVACAINE
     Indication: SPINAL ANAESTHESIA
     Dosage: WITH ADDED GLUCOSE, ANDQUOT;HEAVYANDQUOT; 5 MG/ML
     Route: 037
  3. FENTANYL. [Suspect]
     Active Substance: FENTANYL
     Indication: SPINAL ANAESTHESIA
     Route: 037
  4. GLUCOSE [Concomitant]
     Active Substance: DEXTROSE
     Indication: MEDICATION DILUTION
     Dosage: 5 MG/ML?A DOSE OF BUPIVACAINE (WITH ADDED GLUCOSE, ANDQUOT;HEAVYANDQUOT; 5 MG/ML)
     Route: 037
  5. BUPIVACAINE ALTERNOVA, 5 MG/ML INJEKTIONSV?TSKA, LOSNING [Suspect]
     Active Substance: BUPIVACAINE
     Indication: EPIDURAL ANAESTHESIA
     Dosage: 1 MG/ML IN VOLUMES OF 10 ML ADMINISTERED IN MINIMUM TIME LAPS OF 60 MIN?BOLUS
     Route: 040
  6. MORPHINE [Suspect]
     Active Substance: MORPHINE
     Indication: SPINAL ANAESTHESIA
     Dosage: 0.4 MG/ML,100 MICORGRAM
     Route: 037

REACTIONS (4)
  - Maternal exposure during pregnancy [Recovered/Resolved]
  - Respiratory depression [Recovered/Resolved]
  - Muscular weakness [Recovered/Resolved]
  - Loss of consciousness [Recovered/Resolved]
